FAERS Safety Report 5932140-X (Version None)
Quarter: 2008Q4

REPORT INFORMATION
  Report Type: 
  Country: None (occurrence: None)
  Receive Date: 20081027
  Receipt Date: 20081027
  Transmission Date: 20090506
  Serious: Yes (Life-Threatening)
  Sender: FDA-Public Use
  Company Number: None

PATIENT
  Age: 77 Year
  Sex: Male
  Weight: 99.7913 kg

DRUGS (1)
  1. PACERONE [Suspect]
     Indication: VENTRICULAR TACHYCARDIA
     Dosage: 800 MG 400 BID X- 14 DAYS PO; 200 MG 200 HS PO
     Route: 048
     Dates: start: 20080616, end: 20081014

REACTIONS (5)
  - CHEST DISCOMFORT [None]
  - GENERAL PHYSICAL HEALTH DETERIORATION [None]
  - PULMONARY TOXICITY [None]
  - PYREXIA [None]
  - UPPER RESPIRATORY TRACT INFECTION [None]
